FAERS Safety Report 25060059 (Version 3)
Quarter: 2025Q4

REPORT INFORMATION
  Report Type: Report from Study
  Country: EU (occurrence: EU)
  Receive Date: 20250310
  Receipt Date: 20251011
  Transmission Date: 20260119
  Serious: Yes (Hospitalization, Other)
  Sender: ABBVIE
  Company Number: EU-ABBVIE-6168648

PATIENT
  Age: 29 Year
  Sex: Female
  Weight: 50.6 kg

DRUGS (4)
  1. UPADACITINIB [Suspect]
     Active Substance: UPADACITINIB
     Indication: Crohn^s disease
     Route: 048
     Dates: start: 20240917, end: 20241030
  2. SOLUPRED [Concomitant]
     Indication: Crohn^s disease
     Route: 048
     Dates: start: 20241024, end: 20241112
  3. SOLUPRED [Concomitant]
     Indication: Crohn^s disease
     Route: 048
     Dates: start: 20241113, end: 20241123
  4. SOLUPRED [Concomitant]
     Indication: Crohn^s disease
     Route: 048
     Dates: start: 20241124

REACTIONS (1)
  - Small intestinal obstruction [Recovered/Resolved with Sequelae]

NARRATIVE: CASE EVENT DATE: 20241126
